FAERS Safety Report 4754222-0 (Version None)
Quarter: 2005Q3

REPORT INFORMATION
  Report Type: 
  Country: None (occurrence: None)
  Receive Date: 20050825
  Receipt Date: 20050812
  Transmission Date: 20060218
  Serious: Yes (Hospitalization, Other)
  Sender: FDA-Public Use
  Company Number: HQWYE915815AUG05

PATIENT
  Age: 47 Year
  Sex: Male

DRUGS (3)
  1. RAPAMUNE [Suspect]
     Indication: PROPHYLAXIS AGAINST TRANSPLANT REJECTION
     Dosage: 2 MG 1X PER 1 DAY ORAL
     Route: 048
     Dates: start: 20041125
  2. CORTICOSTEROID NOS (CORTICOSTEROID NOS,) [Suspect]
     Indication: PROPHYLAXIS AGAINST TRANSPLANT REJECTION
  3. CYCLOSPORINE [Suspect]
     Indication: PROPHYLAXIS AGAINST TRANSPLANT REJECTION
     Dosage: 80 MG 1X PER 1 DAY ORAL
     Route: 048
     Dates: start: 20041125

REACTIONS (5)
  - COMPLICATIONS OF TRANSPLANTED KIDNEY [None]
  - KIDNEY TRANSPLANT REJECTION [None]
  - NEUTROPHIL PERCENTAGE INCREASED [None]
  - PERINEPHRIC ABSCESS [None]
  - PERINEPHRIC EFFUSION [None]
